FAERS Safety Report 25401615 (Version 1)
Quarter: 2025Q2

REPORT INFORMATION
  Report Type: Spontaneous
  Country: AU (occurrence: AU)
  Receive Date: 20250605
  Receipt Date: 20250605
  Transmission Date: 20250716
  Serious: Yes (Death, Life-Threatening, Other)
  Sender: Kenvue
  Company Number: AU-HALEON-2233650

PATIENT

DRUGS (2)
  1. ACETAMINOPHEN [Suspect]
     Active Substance: ACETAMINOPHEN
     Indication: Pyrexia
     Route: 048
     Dates: start: 2022
  2. ACETAMINOPHEN [Suspect]
     Active Substance: ACETAMINOPHEN
     Indication: Pain
     Dosage: 4 GRAM, ONCE A DAY
     Route: 048

REACTIONS (2)
  - Acute hepatic failure [Fatal]
  - Overdose [Fatal]
